FAERS Safety Report 14317251 (Version 1)
Quarter: 2017Q4

REPORT INFORMATION
  Report Type: Report from Study
  Country: UA (occurrence: UA)
  Receive Date: 20171222
  Receipt Date: 20171222
  Transmission Date: 20180321
  Serious: Yes (Other)
  Sender: FDA-Public Use
  Company Number: UA-TEVA-2017-UA-834300

PATIENT
  Age: 6 Year
  Sex: Female
  Weight: 16.6 kg

DRUGS (13)
  1. LONQUEX [Suspect]
     Active Substance: LIPEGFILGRASTIM
  2. IFOSFAMIDE. [Suspect]
     Active Substance: IFOSFAMIDE
     Indication: EWING^S SARCOMA
     Dosage: 1,2,3 DAY OF CYCLE. DATE OF LAST DOSE PRIOR TO SAE: 04-DEC-2017
     Route: 042
     Dates: start: 20171202
  3. DEXKETOPROFEN TROMETAMOL [Concomitant]
     Active Substance: DEXKETOPROFEN TROMETAMOL
     Indication: STOMATITIS
     Route: 042
     Dates: start: 20171120, end: 20171121
  4. VFEND [Concomitant]
     Active Substance: VORICONAZOLE
     Route: 042
     Dates: start: 20171121, end: 20171123
  5. VINCRISTINE [Suspect]
     Active Substance: VINCRISTINE
     Indication: EWING^S SARCOMA
     Dosage: 1 DAY OF CYCLE. DATE OF LAST DOSE PRIOR TO SAE: 02-DEC-2017
     Route: 042
     Dates: start: 20171202
  6. IBUPROFEN. [Concomitant]
     Active Substance: IBUPROFEN
     Indication: PYREXIA
     Dosage: 200 MILLIGRAM DAILY;
     Route: 048
     Dates: start: 20171023, end: 20171023
  7. VFEND [Concomitant]
     Active Substance: VORICONAZOLE
     Indication: STOMATITIS
     Route: 042
     Dates: start: 20171120, end: 20171120
  8. NEUPOGEN [Suspect]
     Active Substance: FILGRASTIM
     Indication: COLONY STIMULATING FACTOR PROPHYLAXIS
     Dosage: 85 MICROGRAM DAILY; LAST DOSE PRIOR TO SAE: 08-DEC-2017
     Route: 058
     Dates: start: 20171021
  9. AMIKACIN [Concomitant]
     Active Substance: AMIKACIN
     Indication: NEUTROPENIA
     Dosage: 240 MILLIGRAM DAILY;
     Route: 042
     Dates: start: 20171025, end: 20171028
  10. DOXORUBICIN [Suspect]
     Active Substance: DOXORUBICIN
     Indication: EWING^S SARCOMA
     Dosage: DATE OF LAST DOSE PRIOR TO SAE: 12-NOV-2017
     Route: 042
     Dates: start: 20171110
  11. ETOPOSIDE. [Suspect]
     Active Substance: ETOPOSIDE
     Indication: EWING^S SARCOMA
     Dosage: DAY 1,2,3 OF CYCLE. DATE OF LAST DOSE PRIOR TO SAE: 05-DEC-2017
     Route: 042
     Dates: start: 20171203
  12. AUROTAZ [Concomitant]
     Indication: NEUTROPENIA
     Dosage: 4.5 GRAM DAILY;
     Route: 042
     Dates: start: 20171025, end: 20171028
  13. ERYTHROPOIETIN [Concomitant]
     Active Substance: ERYTHROPOIETIN
     Indication: ANAEMIA
     Dosage: 857.1429 IU (INTERNATIONAL UNIT) DAILY;
     Route: 058
     Dates: start: 20171122

REACTIONS (2)
  - Febrile neutropenia [Not Recovered/Not Resolved]
  - Leukopenia [Not Recovered/Not Resolved]

NARRATIVE: CASE EVENT DATE: 20171209
